FAERS Safety Report 18997923 (Version 2)
Quarter: 2021Q2

REPORT INFORMATION
  Report Type: Other
  Country: US (occurrence: US)
  Receive Date: 20210311
  Receipt Date: 20210603
  Transmission Date: 20210717
  Serious: Yes (Hospitalization)
  Sender: FDA-Public Use
  Company Number: US-ROCHE-2778853

PATIENT
  Age: 37 Year
  Sex: Male
  Weight: 74.91 kg

DRUGS (7)
  1. KEPPRA [Concomitant]
     Active Substance: LEVETIRACETAM
     Indication: EPILEPSY
  2. OCREVUS [Suspect]
     Active Substance: OCRELIZUMAB
     Dosage: JUN AND DEC?MOST RECENT INFUSIONS RECEIVED ON 15/JUN/2018, 10/DEC/2018, 07/JUN/2019, 17/DEC/2019, 17
     Route: 042
  3. PHENYTOIN. [Concomitant]
     Active Substance: PHENYTOIN
     Indication: EPILEPSY
  4. PHENYTOIN. [Concomitant]
     Active Substance: PHENYTOIN
     Indication: SEIZURE
     Route: 048
     Dates: start: 2020
  5. OCREVUS [Suspect]
     Active Substance: OCRELIZUMAB
     Indication: RELAPSING MULTIPLE SCLEROSIS
     Dosage: JUN AND DEC?MOST RECENT INFUSIONS RECEIVED ON 15/JUN/2018, 10/DEC/2018, 07/JUN/2019, 17/DEC/2019, 17
     Route: 042
     Dates: start: 20180601
  6. KEPPRA [Concomitant]
     Active Substance: LEVETIRACETAM
     Indication: SEIZURE
     Route: 048
     Dates: start: 2017
  7. VITAMIN D3 [Concomitant]
     Active Substance: CHOLECALCIFEROL
     Route: 048
     Dates: start: 20170105

REACTIONS (4)
  - COVID-19 [Unknown]
  - Seizure [Not Recovered/Not Resolved]
  - Coma [Unknown]
  - Influenza [Recovered/Resolved]

NARRATIVE: CASE EVENT DATE: 20200127
